FAERS Safety Report 5213394-4 (Version None)
Quarter: 2007Q1

REPORT INFORMATION
  Report Type: 
  Country: None (occurrence: None)
  Receive Date: 20070119
  Receipt Date: 20061102
  Transmission Date: 20070707
  Serious: No
  Sender: FDA-Public Use
  Company Number: US-GLAXOSMITHKLINE-A0626058A

PATIENT
  Age: 44 Year
  Sex: Female

DRUGS (10)
  1. ARIXTRA [Suspect]
     Indication: DRUG USE FOR UNKNOWN INDICATION
     Dosage: 2.5MG SINGLE DOSE
     Route: 058
     Dates: start: 20061029
  2. GLUCOVANCE [Concomitant]
  3. VALIUM [Concomitant]
  4. VASOTEC [Concomitant]
  5. SYNTHROID [Concomitant]
  6. ANTIVERT [Concomitant]
  7. PREVACID [Concomitant]
  8. CLINDAMYCIN [Concomitant]
  9. ULTRAM [Concomitant]
  10. UNSPECIFIED MEDICATIONS [Concomitant]

REACTIONS (2)
  - ACCIDENTAL NEEDLE STICK [None]
  - PHARMACEUTICAL PRODUCT COMPLAINT [None]
